FAERS Safety Report 19674990 (Version 2)
Quarter: 2021Q3

REPORT INFORMATION
  Report Type: Other
  Country: IT (occurrence: IT)
  Receive Date: 20210809
  Receipt Date: 20210921
  Transmission Date: 20211014
  Serious: Yes (Hospitalization)
  Sender: FDA-Public Use
  Company Number: IT-ROCHE-2883048

PATIENT
  Age: 39 Year
  Sex: Female
  Weight: 52 kg

DRUGS (3)
  1. ESCITALOPRAM [Concomitant]
     Active Substance: ESCITALOPRAM OXALATE
     Route: 048
  2. CHOLECALCIFEROL [Concomitant]
     Active Substance: CHOLECALCIFEROL
     Route: 048
  3. OCRELIZUMAB. [Suspect]
     Active Substance: OCRELIZUMAB
     Indication: SECONDARY PROGRESSIVE MULTIPLE SCLEROSIS
     Dosage: DOSE LAST STUDY DRUG ADMIN PRIOR AE IS 300 MGDOSE LAST STUDY DRUG ADMIN PRIOR SAE IS 300 MG
     Route: 042
     Dates: start: 20210408

REACTIONS (2)
  - Pyrexia [Recovered/Resolved]
  - Lymphopenia [Recovered/Resolved]

NARRATIVE: CASE EVENT DATE: 20210711
